FAERS Safety Report 11937992 (Version 4)
Quarter: 2016Q1

REPORT INFORMATION
  Report Type: Spontaneous
  Country: JP (occurrence: JP)
  Receive Date: 20160122
  Receipt Date: 20160227
  Transmission Date: 20160526
  Serious: Yes (Other)
  Sender: FDA-Public Use
  Company Number: JP-009507513-1601JPN006590

PATIENT
  Age: 80 Year
  Sex: Female
  Weight: 55.5 kg

DRUGS (5)
  1. PREDNISOLONE. [Suspect]
     Active Substance: PREDNISOLONE
     Dosage: DAILY DOSE 7.5MG
     Route: 065
  2. PREDNISOLONE. [Suspect]
     Active Substance: PREDNISOLONE
     Dosage: DAILY DOSE 40 MG
     Route: 065
     Dates: start: 20140312
  3. DEXAMETHASONE. [Suspect]
     Active Substance: DEXAMETHASONE
     Indication: POEMS SYNDROME
     Dosage: 40MG/DAY
     Route: 065
     Dates: start: 20140708
  4. PREDNISOLONE. [Suspect]
     Active Substance: PREDNISOLONE
     Indication: POEMS SYNDROME
     Dosage: DAILY DOSE 20 MG
     Route: 065
     Dates: start: 20140226, end: 20140312
  5. MELPHALAN [Suspect]
     Active Substance: MELPHALAN
     Indication: POEMS SYNDROME
     Dosage: DAILY DOSE 4MG, FREQUENCY UNKNOWN
     Route: 065
     Dates: start: 20140708, end: 20140710

REACTIONS (2)
  - Thrombocytopenia [Recovering/Resolving]
  - Off label use [Unknown]
